FAERS Safety Report 4296376-9 (Version None)
Quarter: 2004Q1

REPORT INFORMATION
  Report Type: 
  Country: None (occurrence: None)
  Receive Date: 20040213
  Receipt Date: 20040213
  Transmission Date: 20041129
  Serious: Yes (Hospitalization)
  Sender: FDA-Public Use
  Company Number: None

PATIENT
  Sex: Male
  Weight: 69.8539 kg

DRUGS (4)
  1. TYLENOL W/ CODEINE NO. 3 [Suspect]
     Indication: RIB FRACTURE
     Dosage: PO [ON THE SUNDAY PRIOR TO ADMISSION]
     Route: 048
  2. ATROVENT [Concomitant]
  3. AEROBID [Concomitant]
  4. ASACOL [Concomitant]

REACTIONS (5)
  - ABDOMINAL DISTENSION [None]
  - ABDOMINAL PAIN [None]
  - NAUSEA [None]
  - SMALL INTESTINAL OBSTRUCTION [None]
  - VOMITING [None]
